FAERS Safety Report 22633524 (Version 1)
Quarter: 2023Q2

REPORT INFORMATION
  Report Type: Spontaneous
  Country: US (occurrence: US)
  Receive Date: 20230623
  Receipt Date: 20230623
  Transmission Date: 20230722
  Serious: Yes (Other)
  Sender: FDA-Public Use
  Company Number: US-AUROBINDO-AUR-APL-2023-042959

PATIENT
  Age: 71 Year
  Sex: Male

DRUGS (16)
  1. METHADONE [Suspect]
     Active Substance: METHADONE HYDROCHLORIDE
     Indication: SUNCT syndrome
     Dosage: UNK
     Route: 065
     Dates: start: 201905
  2. MELOXICAM [Suspect]
     Active Substance: MELOXICAM
     Indication: SUNCT syndrome
     Dosage: UNK
     Route: 065
     Dates: start: 2019
  3. PROCHLORPERAZINE EDISYLATE [Suspect]
     Active Substance: PROCHLORPERAZINE EDISYLATE
     Indication: SUNCT syndrome
     Dosage: UNK
     Route: 065
     Dates: start: 201905
  4. VERAPAMIL HYDROCHLORIDE [Suspect]
     Active Substance: VERAPAMIL HYDROCHLORIDE
     Indication: SUNCT syndrome
     Dosage: UNK
     Route: 065
     Dates: start: 2019
  5. VALSARTAN [Suspect]
     Active Substance: VALSARTAN
     Indication: SUNCT syndrome
     Dosage: UNK
     Route: 065
     Dates: start: 2019
  6. OXYCONTIN [Suspect]
     Active Substance: OXYCODONE HYDROCHLORIDE
     Indication: SUNCT syndrome
     Dosage: UNK
     Route: 065
     Dates: start: 201905
  7. LYRICA [Suspect]
     Active Substance: PREGABALIN
     Indication: SUNCT syndrome
     Dosage: UNK
     Route: 065
     Dates: start: 2019
  8. TRILEPTAL [Suspect]
     Active Substance: OXCARBAZEPINE
     Indication: SUNCT syndrome
     Dosage: UNK
     Route: 065
     Dates: start: 2019
  9. TYLENOL [Suspect]
     Active Substance: ACETAMINOPHEN
     Indication: SUNCT syndrome
     Dosage: UNK
     Route: 065
     Dates: start: 2019
  10. MEXILETINE [Concomitant]
     Active Substance: MEXILETINE
     Indication: SUNCT syndrome
     Dosage: UNK
     Route: 065
     Dates: start: 201905
  11. LIDOCAINE [Concomitant]
     Active Substance: LIDOCAINE
     Indication: SUNCT syndrome
     Dosage: UNK
     Route: 065
  12. INDOMETHACIN [Concomitant]
     Active Substance: INDOMETHACIN
     Indication: SUNCT syndrome
     Dosage: UNK
     Route: 065
     Dates: start: 2019
  13. CYMBALTA [Concomitant]
     Active Substance: DULOXETINE HYDROCHLORIDE
     Indication: SUNCT syndrome
     Dosage: UNK
     Route: 065
     Dates: start: 2019
  14. LAMICTAL [Concomitant]
     Active Substance: LAMOTRIGINE
     Indication: SUNCT syndrome
     Dosage: UNK
     Route: 065
     Dates: start: 2019
  15. DEPAKOTE [Concomitant]
     Active Substance: DIVALPROEX SODIUM
     Indication: SUNCT syndrome
     Dosage: UNK
     Route: 065
     Dates: start: 2019
  16. TEGRETOL [Concomitant]
     Active Substance: CARBAMAZEPINE
     Indication: SUNCT syndrome
     Dosage: UNK
     Route: 065
     Dates: start: 2019

REACTIONS (1)
  - Treatment failure [Unknown]
